FAERS Safety Report 4546650-3 (Version None)
Quarter: 2005Q1

REPORT INFORMATION
  Report Type: 
  Country: None (occurrence: None)
  Receive Date: 20050103
  Receipt Date: 20041216
  Transmission Date: 20050727
  Serious: Yes (Death, Hospitalization)
  Sender: FDA-Public Use
  Company Number: FR_041205431

PATIENT
  Age: 60 Year
  Sex: Male
  Weight: 75 kg

DRUGS (8)
  1. GEMZAR [Suspect]
     Indication: LUNG ADENOCARCINOMA
     Dosage: 2410 MG/2 OTHER
     Route: 050
     Dates: start: 20041018
  2. CARBOPLATIN [Concomitant]
  3. SOLU-MEDROL [Concomitant]
  4. MORPHINE [Concomitant]
  5. LANSOPRAZOLE [Concomitant]
  6. CORDARONE [Concomitant]
  7. FLUCONAZOLE [Concomitant]
  8. FLUCONAZOLE [Concomitant]

REACTIONS (8)
  - ADENOCARCINOMA [None]
  - BONE MARROW DEPRESSION [None]
  - HAEMOGLOBIN DECREASED [None]
  - MALIGNANT NEOPLASM PROGRESSION [None]
  - NAUSEA [None]
  - PAIN [None]
  - THROMBOCYTOPENIA [None]
  - WHITE BLOOD CELL COUNT INCREASED [None]
